FAERS Safety Report 21861710 (Version 1)
Quarter: 2023Q1

REPORT INFORMATION
  Report Type: Spontaneous
  Country: FR (occurrence: FR)
  Receive Date: 20230113
  Receipt Date: 20230113
  Transmission Date: 20230418
  Serious: Yes (Life-Threatening, Other)
  Sender: FDA-Public Use
  Company Number: None

PATIENT
  Age: 17 Year
  Sex: Male

DRUGS (3)
  1. PREGABALIN [Suspect]
     Active Substance: PREGABALIN
     Indication: Product used for unknown indication
     Dosage: UNK,REGULAR CONSUMPTION BUT NOT DAILY
     Route: 048
     Dates: start: 2020
  2. RIVOTRIL [Suspect]
     Active Substance: CLONAZEPAM
     Indication: Product used for unknown indication
     Dosage: UNK,REGULAR CONSUMPTION BUT NOT DAILY
     Route: 048
     Dates: start: 2020
  3. CANNABIS SATIVA SUBSP. INDICA TOP [Concomitant]
     Active Substance: CANNABIS SATIVA SUBSP. INDICA TOP
     Dosage: UNK,6/7 TIMES A WEEK
     Route: 065

REACTIONS (4)
  - Coma [Recovered/Resolved]
  - Drug abuse [Not Recovered/Not Resolved]
  - Substance use [Not Recovered/Not Resolved]
  - Intentional product misuse [Not Recovered/Not Resolved]

NARRATIVE: CASE EVENT DATE: 20200101
